FAERS Safety Report 15440451 (Version 1)
Quarter: 2018Q3

REPORT INFORMATION
  Report Type: Spontaneous
  Country: US (occurrence: US)
  Receive Date: 20180928
  Receipt Date: 20180928
  Transmission Date: 20181010
  Serious: Yes (Other)
  Sender: FDA-Public Use
  Company Number: US-ROCHE-2188231

PATIENT
  Sex: Female

DRUGS (2)
  1. OCREVUS [Suspect]
     Active Substance: OCRELIZUMAB
     Indication: SECONDARY PROGRESSIVE MULTIPLE SCLEROSIS
     Dosage: ONGOING:NO
     Route: 042
     Dates: start: 201710, end: 201710
  2. OCREVUS [Suspect]
     Active Substance: OCRELIZUMAB
     Dosage: THIRD INFUSION
     Route: 042
     Dates: start: 201804

REACTIONS (3)
  - Secondary progressive multiple sclerosis [Unknown]
  - Intentional product use issue [Unknown]
  - Off label use [Unknown]
